FAERS Safety Report 6549092-4 (Version None)
Quarter: 2010Q1

REPORT INFORMATION
  Report Type: 
  Country: None (occurrence: None)
  Receive Date: 20100125
  Receipt Date: 20100119
  Transmission Date: 20100710
  Serious: Yes (Hospitalization, Other)
  Sender: FDA-Public Use
  Company Number: FR-BAYER-201012715GPV

PATIENT
  Age: 61 Year
  Sex: Male

DRUGS (9)
  1. NEXAVAR [Suspect]
     Indication: RENAL CANCER METASTATIC
     Route: 048
     Dates: start: 20090801, end: 20091205
  2. NEXAVAR [Suspect]
     Dosage: TOTAL DAILY DOSE: 800 MG
     Route: 048
     Dates: start: 20080902, end: 20090801
  3. ATENOLOL [Concomitant]
     Indication: HYPERTENSION
  4. COAPROVEL [Concomitant]
     Indication: HYPERTENSION
  5. CHRONADALATE [Concomitant]
     Indication: HYPERTENSION
  6. PRAVASTATIN [Concomitant]
     Indication: HYPERCHOLESTEROLAEMIA
  7. NOVONORM [Concomitant]
     Indication: DIABETES MELLITUS
  8. ADANCOR [Concomitant]
     Indication: MYOCARDIAL ISCHAEMIA
  9. METFORMIN [Concomitant]
     Indication: DIABETES MELLITUS

REACTIONS (6)
  - ABDOMINAL PAIN [None]
  - ALANINE AMINOTRANSFERASE INCREASED [None]
  - ASPARTATE AMINOTRANSFERASE INCREASED [None]
  - HEPATITIS [None]
  - RENAL CANCER METASTATIC [None]
  - VOMITING [None]
